FAERS Safety Report 11358163 (Version 1)
Quarter: 2015Q3

REPORT INFORMATION
  Report Type: Spontaneous
  Country: US (occurrence: US)
  Receive Date: 20150803
  Receipt Date: 20150803
  Transmission Date: 20151125
  Serious: No
  Sender: FDA-Public Use
  Company Number: US-ELI_LILLY_AND_COMPANY-US200805001761

PATIENT
  Sex: Male

DRUGS (1)
  1. STRATTERA [Suspect]
     Active Substance: ATOMOXETINE HYDROCHLORIDE
     Dosage: 40 MG, DAILY (1/D)

REACTIONS (6)
  - Chromaturia [Unknown]
  - Urine odour abnormal [Unknown]
  - Discomfort [Unknown]
  - Urinary hesitation [Unknown]
  - Burning sensation [Unknown]
  - Pain [Unknown]
